FAERS Safety Report 8488289-3 (Version None)
Quarter: 2012Q3

REPORT INFORMATION
  Report Type: 
  Country: None (occurrence: None)
  Receive Date: 20120705
  Receipt Date: 20120625
  Transmission Date: 20120928
  Serious: Yes (Other)
  Sender: FDA-Public Use
  Company Number: CA-JNJFOC-20120307359

PATIENT
  Sex: Female
  Weight: 49 kg

DRUGS (3)
  1. REMICADE [Suspect]
     Route: 042
     Dates: start: 20080101, end: 20120501
  2. BUDESONIDE [Concomitant]
     Route: 065
  3. REMICADE [Suspect]
     Indication: CROHN'S DISEASE
     Route: 042
     Dates: start: 20080401, end: 20120315

REACTIONS (3)
  - ADVERSE DRUG REACTION [None]
  - ARTHRALGIA [None]
  - INFLAMMATION [None]
